FAERS Safety Report 17309271 (Version 1)
Quarter: 2020Q1

REPORT INFORMATION
  Report Type: Spontaneous
  Country: GB (occurrence: GB)
  Receive Date: 20200123
  Receipt Date: 20200123
  Transmission Date: 20200409
  Serious: Yes (Other)
  Sender: FDA-Public Use
  Company Number: GB-MYLANLABS-MK-6031218

PATIENT
  Age: 28 Year
  Sex: Female

DRUGS (1)
  1. CITALOPRAM [Suspect]
     Active Substance: CITALOPRAM HYDROBROMIDE
     Indication: DEPRESSION
     Dosage: 20 MG,QD
     Route: 048
     Dates: start: 20070216, end: 20070218

REACTIONS (3)
  - Muscle twitching [Recovering/Resolving]
  - Dyskinesia [Recovering/Resolving]
  - Obsessive-compulsive disorder [Recovering/Resolving]

NARRATIVE: CASE EVENT DATE: 20070216
